FAERS Safety Report 6842232-9 (Version None)
Quarter: 2010Q3

REPORT INFORMATION
  Report Type: 
  Country: None (occurrence: None)
  Receive Date: 20100714
  Receipt Date: 20070406
  Transmission Date: 20110219
  Serious: Yes (Other)
  Sender: FDA-Public Use
  Company Number: US-GENENTECH-304000

PATIENT
  Sex: Male
  Weight: 68 kg

DRUGS (10)
  1. LUCENTIS [Suspect]
     Indication: MACULAR DEGENERATION
     Dosage: 3 MG, UNK
     Route: 031
     Dates: start: 20060728
  2. LUCENTIS [Suspect]
     Dosage: 3 MG, UNK
     Dates: start: 20060901
  3. LUCENTIS [Suspect]
     Dosage: 3 MG, UNK
     Dates: start: 20061004
  4. LUCENTIS [Suspect]
     Dosage: 3 MG, UNK
     Dates: start: 20061117
  5. LUCENTIS [Suspect]
     Dosage: 3 MG, UNK
     Dates: start: 20070116
  6. LUCENTIS [Suspect]
     Dosage: 3 MG, UNK
     Dates: start: 20070223
  7. LEVOTHYROXINE SODIUM [Concomitant]
     Indication: PRODUCT USED FOR UNKNOWN INDICATION
  8. ACTOS [Concomitant]
     Indication: PRODUCT USED FOR UNKNOWN INDICATION
  9. GLYBURIDE [Concomitant]
     Indication: PRODUCT USED FOR UNKNOWN INDICATION
  10. PROTONIX [Concomitant]
     Indication: PRODUCT USED FOR UNKNOWN INDICATION

REACTIONS (1)
  - TRANSIENT ISCHAEMIC ATTACK [None]
